FAERS Safety Report 24359752 (Version 2)
Quarter: 2024Q4

REPORT INFORMATION
  Report Type: Report from Study
  Country: GB (occurrence: GB)
  Receive Date: 20240924
  Receipt Date: 20241001
  Transmission Date: 20250115
  Serious: Yes (Other)
  Sender: ABBVIE
  Company Number: GB-ABBVIE-5626372

PATIENT
  Age: 71 Year
  Sex: Male

DRUGS (12)
  1. CARBIDOPA\LEVODOPA [Suspect]
     Active Substance: CARBIDOPA\LEVODOPA
     Indication: Parkinson^s disease
     Dosage: MD: 7.8 MLS, CR: 3.7 MLS/HR, ED:1.0MLS, 20MG/5MG?LAST ADMIN DATE: 2024
     Route: 050
     Dates: start: 20240130
  2. CARBIDOPA\LEVODOPA [Suspect]
     Active Substance: CARBIDOPA\LEVODOPA
     Dosage: MD: 7.5 CR: 3.3 ED: 1.0 MLS ,?FIRST ADMIN DATE: 2024?LAST ADMIN DATE: 2024
     Route: 050
  3. CARBIDOPA\LEVODOPA [Suspect]
     Active Substance: CARBIDOPA\LEVODOPA
     Dosage: MD: 7.8 MLS, CR:  3.5 MLS/HR, ED:1.2 MLS, 20MG/5MG
     Route: 050
     Dates: start: 20240402, end: 20240416
  4. CARBIDOPA\LEVODOPA [Suspect]
     Active Substance: CARBIDOPA\LEVODOPA
     Dosage: INCREASED CR BY 0.1MLS, ?FIRST ADMIN DATE: 2024 ?LAST ADMIN DATE: 2024
     Route: 050
  5. CARBIDOPA\LEVODOPA [Suspect]
     Active Substance: CARBIDOPA\LEVODOPA
     Dosage: MD: 7.8 CR: 3.4 ED: 1.0
     Route: 050
     Dates: start: 20240416, end: 20240423
  6. CARBIDOPA\LEVODOPA [Suspect]
     Active Substance: CARBIDOPA\LEVODOPA
     Dosage: MD: 7.5   CR: 3.5   ED: 1, ?FIRST ADMIN DATE: 2024
     Route: 050
     Dates: start: 20240423
  7. CARBIDOPA\LEVODOPA [Suspect]
     Active Substance: CARBIDOPA\LEVODOPA
     Dosage: CR 3.6 MLS
     Route: 050
     Dates: start: 20240130, end: 20240130
  8. VITAMIN B12 [Concomitant]
     Active Substance: CYANOCOBALAMIN
     Indication: Vitamin supplementation
  9. SINEMET CR [Concomitant]
     Active Substance: CARBIDOPA\LEVODOPA
     Indication: Product used for unknown indication
     Dosage: 50/200MG
     Route: 065
  10. CARBIDOPA\LEVODOPA [Concomitant]
     Active Substance: CARBIDOPA\LEVODOPA
     Indication: Product used for unknown indication
     Dosage: 25/100MG
     Route: 065
  11. CLONAZEPAM [Concomitant]
     Active Substance: CLONAZEPAM
     Indication: Product used for unknown indication
     Route: 065
  12. MIRTAZAPINE [Concomitant]
     Active Substance: MIRTAZAPINE
     Indication: Product used for unknown indication

REACTIONS (33)
  - Rib fracture [Not Recovered/Not Resolved]
  - Dyskinesia [Recovered/Resolved]
  - Hypoaesthesia [Not Recovered/Not Resolved]
  - Unevaluable event [Unknown]
  - Therapeutic product effect incomplete [Not Recovered/Not Resolved]
  - Tremor [Not Recovered/Not Resolved]
  - Depressed mood [Unknown]
  - Panic attack [Unknown]
  - Dysstasia [Unknown]
  - Anxiety [Unknown]
  - Weight decreased [Recovered/Resolved]
  - Malaise [Unknown]
  - Fall [Recovered/Resolved]
  - Drug intolerance [Unknown]
  - Headache [Unknown]
  - Diarrhoea [Unknown]
  - Device occlusion [Not Recovered/Not Resolved]
  - Fall [Recovered/Resolved]
  - Drug ineffective [Unknown]
  - On and off phenomenon [Unknown]
  - Head injury [Unknown]
  - Skin haemorrhage [Unknown]
  - Dizziness [Unknown]
  - Blood pressure decreased [Unknown]
  - Neck pain [Unknown]
  - Stoma site infection [Not Recovered/Not Resolved]
  - Fall [Recovered/Resolved]
  - Skin laceration [Unknown]
  - Stoma site discharge [Not Recovered/Not Resolved]
  - Constipation [Recovered/Resolved]
  - Fall [Not Recovered/Not Resolved]
  - Haemothorax [Not Recovered/Not Resolved]
  - Embedded device [Not Recovered/Not Resolved]

NARRATIVE: CASE EVENT DATE: 20240101
